FAERS Safety Report 18694794 (Version 6)
Quarter: 2021Q3

REPORT INFORMATION
  Report Type: Spontaneous
  Country: US (occurrence: US)
  Receive Date: 20210104
  Receipt Date: 20210816
  Transmission Date: 20211014
  Serious: Yes (Other)
  Sender: FDA-Public Use
  Company Number: US-PFIZER INC-2021000499

PATIENT
  Age: 30 Year
  Sex: Female

DRUGS (5)
  1. XELJANZ XR [Suspect]
     Active Substance: TOFACITINIB CITRATE
     Dosage: 11 MG
     Dates: start: 20201001
  2. COVID?19 VACCINE [Concomitant]
     Dosage: UNK
     Dates: start: 20210315
  3. XELJANZ XR [Suspect]
     Active Substance: TOFACITINIB CITRATE
     Dosage: 11 MG
     Dates: start: 20200411
  4. XELJANZ XR [Suspect]
     Active Substance: TOFACITINIB CITRATE
     Dosage: 11 MG
     Dates: start: 20200803
  5. XELJANZ XR [Suspect]
     Active Substance: TOFACITINIB CITRATE
     Dosage: 11 MG
     Dates: start: 20201101

REACTIONS (13)
  - Dyspepsia [Unknown]
  - Gastrooesophageal reflux disease [Unknown]
  - Arthralgia [Unknown]
  - Angina pectoris [Unknown]
  - Condition aggravated [Unknown]
  - Psoriasis [Unknown]
  - Skin burning sensation [Unknown]
  - Chest pain [Unknown]
  - Drug ineffective [Unknown]
  - Constipation [Unknown]
  - Insomnia [Unknown]
  - Fatigue [Unknown]
  - Pain in extremity [Unknown]
